FAERS Safety Report 9521025 (Version 1)
Quarter: 2013Q1

REPORT INFORMATION
  Report Type: Spontaneous
  Country: US (occurrence: None)
  Receive Date: 20130305
  Receipt Date: 20130305
  Transmission Date: 20140127
  Serious: Yes (Other)
  Sender: FDA-Public Use
  Company Number: 163-21880-12080623

PATIENT
  Age: 83 Year
  Sex: Female

DRUGS (17)
  1. REVLIMID [Suspect]
     Indication: MYELODYSPLASTIC SYNDROME
     Route: 048
     Dates: start: 20120711, end: 20120801
  2. ZINC (ZINC) (UNKNOWN) [Concomitant]
  3. MAGNESIUM (MAGNESIUM) (UNKNOWN) [Concomitant]
  4. POTASSIUM (POTASSIUM) (UNKNOWN) [Concomitant]
  5. WARFARIN (WARFARIN) (UNKNOWN) [Concomitant]
  6. LEVAQUIN (LEVOFLOXACIN) (TABLETS) [Concomitant]
  7. PRBCS (BLOOD CELLS, PACKED HUMAN) (UNKNOWN) [Concomitant]
  8. BENICAR (OLMESARTAN MEDOXOMIL) (TABLETS) [Concomitant]
  9. HYDROCODONE./ACETAMINOPHEN (REMEDEINE) (TABLETS) [Concomitant]
  10. LIPITOR (ATORVASTATIN) (TABLETS) [Concomitant]
  11. ONDANSETRON HCL (ONDANSETRON HYDROCHLORIDE) (TABLETS) [Concomitant]
  12. PROCHLORPERAZINE MALEATE (PROCHLORPERAZINE MALEATE) (TABLETS) [Concomitant]
  13. SYNTHROID (LEVOTHYROXINE SODIUM) (TABLETS) [Concomitant]
  14. AZITHROMYCIN (AZITHROMYCIN) (TABLETS) [Concomitant]
  15. COLACE (DOCUSATE SODIUM) (UNKNOWN) [Concomitant]
  16. MIRALAX (MACROGOL) (UNKNOWN) [Concomitant]
  17. MILK OF MAGNESIA (MAGNESIUM HYDROXIDE) (UNKNOWN) [Concomitant]

REACTIONS (3)
  - Hallucination [None]
  - Feeling abnormal [None]
  - Rash pruritic [None]
